FAERS Safety Report 9386055 (Version 2)
Quarter: 2013Q3

REPORT INFORMATION
  Report Type: Spontaneous
  Country: US (occurrence: US)
  Receive Date: 20130706
  Receipt Date: 20130827
  Transmission Date: 20140515
  Serious: No
  Sender: FDA-Public Use
  Company Number: US-ASTRAZENECA-2013SE47204

PATIENT
  Age: 83 Year
  Sex: Male
  Weight: 70.3 kg

DRUGS (1)
  1. SYMBICORT PMDI [Suspect]
     Indication: CHRONIC OBSTRUCTIVE PULMONARY DISEASE
     Dosage: 160 MCG/4.5 MCG, BID
     Route: 055
     Dates: start: 2009

REACTIONS (2)
  - Dyspnoea [Unknown]
  - Drug dose omission [Unknown]
